FAERS Safety Report 17167353 (Version 6)
Quarter: 2020Q1

REPORT INFORMATION
  Report Type: Report from Study
  Country: US (occurrence: US)
  Receive Date: 20191218
  Receipt Date: 20200318
  Transmission Date: 20200409
  Serious: Yes (Other)
  Sender: FDA-Public Use
  Company Number: NVSC2019US072634

PATIENT
  Age: 64 Year
  Sex: Male

DRUGS (3)
  1. ENTRESTO [Suspect]
     Active Substance: SACUBITRIL\VALSARTAN
     Indication: PRODUCT USED FOR UNKNOWN INDICATION
     Dosage: 24 MG, BID
     Route: 048
     Dates: start: 201911
  2. INSULIN [Concomitant]
     Active Substance: INSULIN NOS
     Indication: PRODUCT USED FOR UNKNOWN INDICATION
     Dosage: UNK UNK, UNKNOWN
     Route: 065
  3. AMIODARONE [Concomitant]
     Active Substance: AMIODARONE
     Indication: PRODUCT USED FOR UNKNOWN INDICATION
     Dosage: 24 MG, ONCE2SDO
     Route: 048
     Dates: start: 201911, end: 20200225

REACTIONS (13)
  - Arrhythmia [Recovering/Resolving]
  - Palpitations [Recovered/Resolved]
  - Glycosylated haemoglobin increased [Unknown]
  - Groin pain [Not Recovered/Not Resolved]
  - Blood pressure increased [Unknown]
  - Discomfort [Unknown]
  - Contusion [Recovering/Resolving]
  - Blood glucose increased [Unknown]
  - Thyroid hormones increased [Unknown]
  - Gait disturbance [Unknown]
  - Swelling [Unknown]
  - Cough [Not Recovered/Not Resolved]
  - Weight increased [Not Recovered/Not Resolved]

NARRATIVE: CASE EVENT DATE: 201911
